FAERS Safety Report 10204392 (Version 1)
Quarter: 2014Q2

REPORT INFORMATION
  Report Type: Spontaneous
  Country: US (occurrence: None)
  Receive Date: 20140527
  Receipt Date: 20140527
  Transmission Date: 20141212
  Serious: Yes (Hospitalization)
  Sender: FDA-Public Use
  Company Number: None

PATIENT
  Age: 27 Year
  Sex: Male

DRUGS (11)
  1. PYRAZINAMIDE [Suspect]
     Indication: TUBERCULOSIS
     Route: 048
     Dates: start: 20120223, end: 20120314
  2. ALBUTEROL/IPRATROPIUM [Concomitant]
  3. RIFAMPIN [Concomitant]
  4. ISONIAZID [Concomitant]
  5. ETHAMBUTOL [Concomitant]
  6. FUROSEMIDE [Concomitant]
  7. POTASSIUM CHLORIDE [Concomitant]
  8. HYDROMORPHONE [Concomitant]
  9. LANSOPRAZOLE [Concomitant]
  10. SERTRALINE [Concomitant]
  11. QUETIAPINE [Concomitant]

REACTIONS (3)
  - Rash [None]
  - Drug hypersensitivity [None]
  - Eosinophil count increased [None]
